FAERS Safety Report 23458825 (Version 4)
Quarter: 2024Q1

REPORT INFORMATION
  Report Type: Report from Study
  Country: US (occurrence: US)
  Receive Date: 20240131
  Receipt Date: 20240305
  Transmission Date: 20240410
  Serious: Yes (Hospitalization, Other)
  Sender: FDA-Public Use
  Company Number: US-ABBVIE-5607371

PATIENT
  Age: 74 Year
  Sex: Male
  Weight: 66 kg

DRUGS (9)
  1. SKYRIZI [Suspect]
     Active Substance: RISANKIZUMAB-RZAA
     Indication: Psoriasis
     Dosage: WEEK 0
     Route: 058
     Dates: start: 20211216, end: 20211216
  2. SKYRIZI [Suspect]
     Active Substance: RISANKIZUMAB-RZAA
     Route: 058
     Dates: end: 20231213
  3. SKYRIZI [Suspect]
     Active Substance: RISANKIZUMAB-RZAA
     Route: 058
  4. LOSARTAN [Concomitant]
     Active Substance: LOSARTAN
     Indication: Hypertension
  5. LOVENOX [Concomitant]
     Active Substance: ENOXAPARIN SODIUM
     Indication: Pulmonary embolism
  6. AMLODIPINE [Concomitant]
     Active Substance: AMLODIPINE BESYLATE
     Indication: Product used for unknown indication
  7. TADALAFIL [Concomitant]
     Active Substance: TADALAFIL
     Indication: Benign prostatic hyperplasia
  8. ASPIRIN [Concomitant]
     Active Substance: ASPIRIN
     Indication: Blood viscosity decreased
     Dosage: FORM STRENGTH: 81MG
  9. ELIQUIS [Concomitant]
     Active Substance: APIXABAN
     Indication: Blood viscosity decreased

REACTIONS (5)
  - Gastrointestinal neuroendocrine carcinoma [Recovering/Resolving]
  - Weight decreased [Recovering/Resolving]
  - Intestinal obstruction [Recovering/Resolving]
  - Renal cancer [Unknown]
  - Colostomy [Unknown]

NARRATIVE: CASE EVENT DATE: 20231001
